FAERS Safety Report 5130225-1 (Version None)
Quarter: 2006Q4

REPORT INFORMATION
  Report Type: 
  Country: None (occurrence: None)
  Receive Date: 20061019
  Receipt Date: 20060425
  Transmission Date: 20070319
  Serious: Yes (Other)
  Sender: FDA-Public Use
  Company Number: PHBS2006FR06360

PATIENT
  Age: 26 Year
  Sex: Male

DRUGS (3)
  1. CARBAMAZEPINE [Suspect]
     Indication: COMPLEX PARTIAL SEIZURES
     Dosage: 1600 MG/DAY
     Route: 065
  2. VIGABATRIN [Suspect]
     Indication: COMPLEX PARTIAL SEIZURES
     Dosage: 3000 MG/DAY
     Route: 065
  3. VALPROATE SODIUM [Suspect]
     Indication: COMPLEX PARTIAL SEIZURES
     Dosage: 2000 MG/DAY
     Route: 065

REACTIONS (8)
  - CONDITION AGGRAVATED [None]
  - CONFUSIONAL STATE [None]
  - ELECTROENCEPHALOGRAM ABNORMAL [None]
  - EYE MOVEMENT DISORDER [None]
  - EYE ROLLING [None]
  - GRAND MAL CONVULSION [None]
  - PARTIAL SEIZURES [None]
  - STATUS EPILEPTICUS [None]
